FAERS Safety Report 7586954-3 (Version None)
Quarter: 2011Q3

REPORT INFORMATION
  Report Type: 
  Country: None (occurrence: None)
  Receive Date: 20110701
  Receipt Date: 20110628
  Transmission Date: 20111222
  Serious: Yes (Hospitalization, Other)
  Sender: FDA-Public Use
  Company Number: US-GILEAD-2011-0038414

PATIENT
  Sex: Female
  Weight: 70.9 kg

DRUGS (16)
  1. EMTRICITABINE AND TENOFOVIR DISOPROXIL FUMARATE [Suspect]
     Indication: HIV INFECTION
     Dates: start: 20110131, end: 20110426
  2. DRONABINOL [Concomitant]
     Indication: DECREASED APPETITE
  3. NEXIUM [Concomitant]
     Indication: ABDOMINAL PAIN UPPER
  4. CITALOPRAM [Concomitant]
     Indication: DEPRESSION
  5. M.V.I. [Concomitant]
     Indication: SUPPLEMENTATION THERAPY
  6. SULFAMETHOXAZOLE AND TRIMETHOPRIM [Concomitant]
     Indication: ANTIFUNGAL PROPHYLAXIS
  7. RALTEGRAVIR [Concomitant]
     Indication: HIV INFECTION
     Route: 048
     Dates: start: 20110131
  8. ONDANSETRON [Concomitant]
     Indication: NAUSEA
  9. EMTRICITABINE [Concomitant]
     Indication: HIV INFECTION
     Dates: start: 20110426
  10. LORAZEPAM [Concomitant]
     Indication: PANIC ATTACK
  11. ETRAVIRINE [Concomitant]
     Indication: HIV INFECTION
     Dates: start: 20110426
  12. VENTOLIN HFA [Concomitant]
     Indication: ASTHMA
  13. CLARITHROMYCIN [Concomitant]
     Indication: MYCOBACTERIUM AVIUM COMPLEX INFECTION
  14. HYDROCODONE [Concomitant]
     Indication: PAIN
  15. ETHAMBUTOL HYDROCHLORIDE [Concomitant]
     Indication: MYCOBACTERIUM AVIUM COMPLEX INFECTION
  16. TRAZODONE HCL [Concomitant]
     Indication: INSOMNIA

REACTIONS (7)
  - FAILURE TO THRIVE [None]
  - WEIGHT DECREASED [None]
  - VOMITING [None]
  - DECREASED APPETITE [None]
  - DIABETES INSIPIDUS [None]
  - BLOOD PHOSPHORUS DECREASED [None]
  - BLOOD CREATININE INCREASED [None]
